FAERS Safety Report 8479042-5 (Version None)
Quarter: 2012Q2

REPORT INFORMATION
  Report Type: 
  Country: None (occurrence: None)
  Receive Date: 20120629
  Receipt Date: 20120619
  Transmission Date: 20120825
  Serious: Yes (Death, Other)
  Sender: FDA-Public Use
  Company Number: BE-CELGENEUS-013-C5013-12042259

PATIENT
  Sex: Male
  Weight: 67 kg

DRUGS (27)
  1. FUROSEMIDE [Concomitant]
     Indication: ATRIAL FIBRILLATION
     Dosage: 20 MILLIGRAM
     Route: 065
     Dates: start: 20111209, end: 20111209
  2. ENOXAPARIN [Concomitant]
     Route: 065
     Dates: start: 20111207, end: 20120106
  3. ISOBETADINE [Concomitant]
     Indication: SKIN DISORDER
     Route: 065
     Dates: start: 20111206, end: 20120106
  4. BISOPROLOL FUMARATE [Concomitant]
     Indication: PROPHYLAXIS
     Dosage: 5 MILLIGRAM
     Route: 065
     Dates: start: 20090624
  5. TRIPTORELIN [Concomitant]
     Indication: PROSTATE CANCER
     Dosage: 3.75 MILLIGRAM
     Route: 065
     Dates: start: 20110912
  6. IRON GLUCONATE [Concomitant]
     Indication: IRON DEFICIENCY ANAEMIA
     Dosage: 695 MILLIGRAM
     Route: 065
     Dates: start: 20111202
  7. ENOXAPARIN [Concomitant]
     Indication: ATRIAL FIBRILLATION
     Route: 065
     Dates: start: 20111201, end: 20111206
  8. DOCETAXEL [Suspect]
     Indication: PROSTATE CANCER
     Route: 065
     Dates: start: 20111004, end: 20111115
  9. FUROSEMIDE [Concomitant]
     Dosage: 40 MILLIGRAM
     Route: 065
     Dates: start: 20111210, end: 20111210
  10. BUMETANIDE [Concomitant]
     Indication: ATRIAL FIBRILLATION
     Route: 065
     Dates: start: 20111211
  11. NOVOLOG [Concomitant]
     Dosage: 16 IU (INTERNATIONAL UNIT)
     Route: 065
     Dates: start: 20111208, end: 20111209
  12. GLICLAZIDE [Concomitant]
     Route: 065
     Dates: start: 20111128, end: 20111201
  13. CLONIDINE [Concomitant]
     Indication: HYPERTENSION
     Route: 065
     Dates: start: 20111201, end: 20111207
  14. MOVIPREP [Concomitant]
     Indication: COLONOSCOPY
     Route: 065
     Dates: start: 20120104, end: 20120104
  15. SPIRONOLACTONE [Concomitant]
     Route: 065
     Dates: start: 20111211, end: 20120105
  16. LOPERAMIDE [Concomitant]
     Route: 065
     Dates: start: 20111214, end: 20111214
  17. FLUTAMIDE [Concomitant]
     Indication: PROSTATE CANCER
     Route: 065
     Dates: start: 20111201, end: 20111221
  18. LENALIDOMIDE [Suspect]
     Indication: PROSTATE CANCER
     Route: 048
     Dates: start: 20111004, end: 20111115
  19. PREDNISONE TAB [Suspect]
     Indication: PROSTATE CANCER
     Dosage: 10 MILLIGRAM
     Route: 065
     Dates: start: 20111004, end: 20111115
  20. LEVOFLOXACIN [Concomitant]
     Indication: URINARY TRACT INFECTION
     Dosage: 500 MILLIGRAM
     Route: 065
     Dates: start: 20111205, end: 20111215
  21. METFORMIN HCL [Concomitant]
     Route: 065
     Dates: start: 20111128
  22. OMEPRAZOLE [Concomitant]
     Route: 065
     Dates: start: 20111226, end: 20120116
  23. LOPERAMIDE [Concomitant]
     Route: 065
     Dates: start: 20111227, end: 20111227
  24. SIMVASTATIN [Concomitant]
     Route: 065
     Dates: start: 20111031, end: 20120105
  25. ACETYLSALICYLIC ACID SRT [Concomitant]
     Indication: CEREBROVASCULAR ACCIDENT
     Route: 065
     Dates: start: 20111201, end: 20111207
  26. FLAMINAL HYDRO [Concomitant]
     Route: 065
     Dates: start: 20111206
  27. NOVOLOG [Concomitant]
     Dosage: 8 IU (INTERNATIONAL UNIT)
     Route: 065
     Dates: start: 20111210

REACTIONS (1)
  - RECTAL CANCER [None]
